FAERS Safety Report 24281558 (Version 1)
Quarter: 2024Q3

REPORT INFORMATION
  Report Type: Spontaneous
  Country: US (occurrence: None)
  Receive Date: 20240901
  Receipt Date: 20240901
  Transmission Date: 20241017
  Serious: Yes (Other)
  Sender: Public
  Company Number: None

PATIENT
  Age: 70 Year
  Sex: Male
  Weight: 84.15 kg

DRUGS (6)
  1. ORGOVYX [Suspect]
     Active Substance: RELUGOLIX
     Indication: Prostate cancer metastatic
     Dates: start: 20240214
  2. ATORVASTATIN [Concomitant]
     Active Substance: ATORVASTATIN
  3. CARVEDILOL [Concomitant]
     Active Substance: CARVEDILOL
  4. LISINOPRIL [Concomitant]
     Active Substance: LISINOPRIL
  5. BABY APIRIN [Concomitant]
  6. KRILL D [Concomitant]

REACTIONS (29)
  - Presyncope [None]
  - Myalgia [None]
  - Bone disorder [None]
  - Arthralgia [None]
  - Fatigue [None]
  - Pruritus [None]
  - Feeling abnormal [None]
  - Memory impairment [None]
  - Irritability [None]
  - Headache [None]
  - Tinnitus [None]
  - Staring [None]
  - Chest pain [None]
  - Confusional state [None]
  - Discomfort [None]
  - Nausea [None]
  - Hyperhidrosis [None]
  - Speech disorder [None]
  - Dysphagia [None]
  - Dizziness [None]
  - Syncope [None]
  - Micturition urgency [None]
  - Back pain [None]
  - Palpitations [None]
  - Heart rate irregular [None]
  - Dyspnoea [None]
  - Bone pain [None]
  - Feeling hot [None]
  - Neck pain [None]

NARRATIVE: CASE EVENT DATE: 20240807
